FAERS Safety Report 10173946 (Version 4)
Quarter: 2014Q3

REPORT INFORMATION
  Report Type: Spontaneous
  Country: US (occurrence: US)
  Receive Date: 20140515
  Receipt Date: 20140714
  Transmission Date: 20150326
  Serious: Yes (Death, Life-Threatening, Other)
  Sender: FDA-Public Use
  Company Number: US-ALEXION PHARMACEUTICALS INC.-A201401695

PATIENT

DRUGS (3)
  1. CALCINEURIN INHIBITORS [Concomitant]
     Active Substance: UNSPECIFIED INGREDIENT
     Indication: PRODUCT USED FOR UNKNOWN INDICATION
     Route: 065
  2. BELATACEPT [Concomitant]
     Active Substance: BELATACEPT
     Indication: PRODUCT USED FOR UNKNOWN INDICATION
     Dosage: UNK
     Route: 065
     Dates: start: 20140501
  3. SOLIRIS [Suspect]
     Active Substance: ECULIZUMAB
     Indication: HAEMOLYTIC URAEMIC SYNDROME
     Dosage: 900 MG, SINGLE
     Route: 042
     Dates: start: 20140429, end: 20140429

REACTIONS (6)
  - Cardiac arrest [Recovering/Resolving]
  - Retroperitoneal haemorrhage [Fatal]
  - Syncope [Fatal]
  - Death [Fatal]
  - Respiration abnormal [Fatal]
  - Arrhythmia [Fatal]

NARRATIVE: CASE EVENT DATE: 20140504
